FAERS Safety Report 7296473-X (Version None)
Quarter: 2011Q1

REPORT INFORMATION
  Report Type: 
  Country: None (occurrence: None)
  Receive Date: 20110216
  Receipt Date: 20110203
  Transmission Date: 20110831
  Serious: Yes (Other)
  Sender: FDA-Public Use
  Company Number: PHHY2011TR08807

PATIENT

DRUGS (5)
  1. VINCRISTINE [Suspect]
     Dosage: UNK
  2. ADRIAMYCIN PFS [Suspect]
     Dosage: UNK
  3. METHOTREXATE [Suspect]
     Dosage: UNK
  4. PREDNISOLONE [Suspect]
     Dosage: UNK
  5. CYCLOPHOSPHAMIDE [Suspect]
     Dosage: UNK

REACTIONS (3)
  - CHROMOSOMAL MUTATION [None]
  - BREAST MASS [None]
  - BREAST CANCER [None]
